FAERS Safety Report 10556916 (Version 2)
Quarter: 2016Q2

REPORT INFORMATION
  Report Type: Spontaneous
  Country: NG (occurrence: NG)
  Receive Date: 20141031
  Receipt Date: 20160530
  Transmission Date: 20160815
  Serious: Yes (Other)
  Sender: FDA-Public Use
  Company Number: NG-JNJFOC-20141014652

PATIENT

DRUGS (3)
  1. OLANZAPINE. [Suspect]
     Active Substance: OLANZAPINE
     Indication: PSYCHOTIC DISORDER
     Route: 065
  2. RISPERIDONE. [Suspect]
     Active Substance: RISPERIDONE
     Indication: PSYCHOTIC DISORDER
     Route: 065
  3. CLOZAPINE. [Suspect]
     Active Substance: CLOZAPINE
     Indication: PSYCHOTIC DISORDER
     Route: 065

REACTIONS (20)
  - Tardive dyskinesia [Unknown]
  - Gynaecomastia [Unknown]
  - Somnolence [Unknown]
  - Ejaculation delayed [Unknown]
  - Urinary retention [Unknown]
  - Seizure [Unknown]
  - Cerebrovascular accident [Unknown]
  - Confusional state [Unknown]
  - Vision blurred [Unknown]
  - Sedation [Unknown]
  - Weight increased [Unknown]
  - Salivary hypersecretion [Unknown]
  - Menstrual disorder [Unknown]
  - Speech disorder [Unknown]
  - Depression [Unknown]
  - Dry mouth [Unknown]
  - Insomnia [Unknown]
  - Suicide attempt [Unknown]
  - Muscle rigidity [Unknown]
  - Heart rate increased [Unknown]
